FAERS Safety Report 21325699 (Version 2)
Quarter: 2022Q4

REPORT INFORMATION
  Report Type: Spontaneous
  Country: US (occurrence: US)
  Receive Date: 20220912
  Receipt Date: 20221005
  Transmission Date: 20230112
  Serious: No
  Sender: FDA-Public Use
  Company Number: US-BAUSCHBL-2022BNL000196

PATIENT
  Age: 76 Year
  Sex: Female

DRUGS (1)
  1. BRIMONIDINE TARTRATE [Suspect]
     Active Substance: BRIMONIDINE TARTRATE
     Indication: Product used for unknown indication
     Route: 047

REACTIONS (4)
  - Instillation site irritation [Recovered/Resolved]
  - Vision blurred [Recovered/Resolved]
  - Wrong technique in product usage process [Unknown]
  - Product delivery mechanism issue [Unknown]
